FAERS Safety Report 11033225 (Version 3)
Quarter: 2015Q2

REPORT INFORMATION
  Report Type: Spontaneous
  Country: US (occurrence: US)
  Receive Date: 20150415
  Receipt Date: 20150505
  Transmission Date: 20150821
  Serious: No
  Sender: FDA-Public Use
  Company Number: US-PFIZER INC-2015127039

PATIENT
  Sex: Male

DRUGS (1)
  1. LYRICA [Suspect]
     Active Substance: PREGABALIN
     Dosage: UNK

REACTIONS (5)
  - Hypoaesthesia [Unknown]
  - Sciatica [Unknown]
  - Pain in extremity [Unknown]
  - Limb discomfort [Unknown]
  - Neuralgia [Unknown]
